FAERS Safety Report 10099393 (Version 2)
Quarter: 2014Q2

REPORT INFORMATION
  Report Type: Spontaneous
  Country: US (occurrence: US)
  Receive Date: 20140423
  Receipt Date: 20140609
  Transmission Date: 20141212
  Serious: Yes (Disabling, Other)
  Sender: FDA-Public Use
  Company Number: US-VERTEX PHARMACEUTICALS INC-2014-002010

PATIENT
  Sex: Female
  Weight: 108.84 kg

DRUGS (1)
  1. INCIVEK [Suspect]
     Indication: HEPATITIS C

REACTIONS (4)
  - Neuropathy peripheral [Unknown]
  - Disability [Unknown]
  - Bedridden [Unknown]
  - Weight increased [Unknown]
